FAERS Safety Report 18371665 (Version 1)
Quarter: 2020Q4

REPORT INFORMATION
  Report Type: Spontaneous
  Country: US (occurrence: US)
  Receive Date: 20201012
  Receipt Date: 20201012
  Transmission Date: 20210114
  Serious: No
  Sender: FDA-Public Use
  Company Number: US-PFIZER INC-2019430673

PATIENT
  Age: 70 Year
  Sex: Female
  Weight: 81.65 kg

DRUGS (1)
  1. SKELAXIN [Suspect]
     Active Substance: METAXALONE
     Indication: MUSCLE DISCOMFORT
     Dosage: 800 MG, 2X/DAY (1 TABLET (800 MG) BY MOUTH 2 TIMES PER DAY)
     Route: 048

REACTIONS (3)
  - Malaise [Unknown]
  - Condition aggravated [Unknown]
  - Off label use [Unknown]
